FAERS Safety Report 16931435 (Version 2)
Quarter: 2020Q1

REPORT INFORMATION
  Report Type: Spontaneous
  Country: GB (occurrence: GB)
  Receive Date: 20191017
  Receipt Date: 20200316
  Transmission Date: 20200409
  Serious: Yes (Hospitalization, Other)
  Sender: FDA-Public Use
  Company Number: GB-MYLANLABS-2019M1097464

PATIENT
  Age: 34 Year
  Sex: Female

DRUGS (11)
  1. NEVIRAPINE. [Suspect]
     Active Substance: NEVIRAPINE
     Indication: HIV INFECTION
     Dosage: 400 MG, QD
     Route: 048
     Dates: start: 20090101, end: 20100610
  2. KALETRA [Suspect]
     Active Substance: LOPINAVIR\RITONAVIR
     Indication: ANTIVIRAL TREATMENT
     Dosage: UNK
     Route: 048
     Dates: start: 20100610
  3. NEVIRAPINE. [Suspect]
     Active Substance: NEVIRAPINE
     Indication: ANTIVIRAL TREATMENT
  4. ISENTRESS [Suspect]
     Active Substance: RALTEGRAVIR POTASSIUM
     Indication: HIV INFECTION
     Dosage: 400 MG, BID (ALSO REPORTED AS 800 MG , QD)
     Route: 048
     Dates: start: 20100610
  5. ZIDOVUDINE. [Suspect]
     Active Substance: ZIDOVUDINE
     Indication: HIV INFECTION
     Dosage: 600 MG, QD
     Route: 048
     Dates: start: 20090101, end: 20100610
  6. LAMIVUDINE. [Suspect]
     Active Substance: LAMIVUDINE
     Indication: HIV INFECTION
     Dosage: 300 MG, QD
     Route: 048
     Dates: start: 20090101, end: 20100610
  7. VIREAD [Suspect]
     Active Substance: TENOFOVIR DISOPROXIL FUMARATE
     Indication: ANTIVIRAL TREATMENT
     Dosage: 300 MILLIGRAM, QD
     Route: 048
     Dates: start: 20100610
  8. ZIDOVUDINE. [Suspect]
     Active Substance: ZIDOVUDINE
     Indication: ANTIVIRAL TREATMENT
  9. LAMIVUDINE. [Suspect]
     Active Substance: LAMIVUDINE
     Indication: ANTIVIRAL TREATMENT
  10. KALETRA [Suspect]
     Active Substance: LOPINAVIR\RITONAVIR
     Indication: HIV INFECTION
     Dosage: UNK
  11. VIREAD [Suspect]
     Active Substance: TENOFOVIR DISOPROXIL FUMARATE
     Indication: HIV INFECTION
     Dosage: UNK

REACTIONS (5)
  - Hepatocellular injury [Unknown]
  - Aspartate aminotransferase increased [Unknown]
  - Maternal exposure during pregnancy [Recovered/Resolved]
  - Caesarean section [Unknown]
  - Alanine aminotransferase increased [Unknown]

NARRATIVE: CASE EVENT DATE: 20100629
